FAERS Safety Report 9999229 (Version 3)
Quarter: 2014Q1

REPORT INFORMATION
  Report Type: Spontaneous
  Country: DE (occurrence: DE)
  Receive Date: 20140312
  Receipt Date: 20140331
  Transmission Date: 20141002
  Serious: Yes (Life-Threatening)
  Sender: FDA-Public Use
  Company Number: DE-JNJFOC-20140214470

PATIENT
  Age: 70 Year
  Sex: Male

DRUGS (8)
  1. XARELTO [Suspect]
     Indication: CEREBROVASCULAR ACCIDENT PROPHYLAXIS
     Route: 048
     Dates: start: 20140131, end: 20140203
  2. XARELTO [Suspect]
     Indication: ATRIAL FIBRILLATION
     Route: 048
     Dates: start: 20140131, end: 20140203
  3. UNFRACTIONATED HEPARIN [Suspect]
     Indication: PRODUCT USED FOR UNKNOWN INDICATION
     Route: 065
  4. DELIX [Concomitant]
     Route: 065
  5. BISOPROLOL [Concomitant]
     Route: 065
  6. LASIX [Concomitant]
     Route: 042
  7. SPIRONOLACTON [Concomitant]
     Route: 065
  8. KALINOR (POTASSIUM BICARBONATE, POTASSIUM CITRATE) [Concomitant]
     Route: 065

REACTIONS (2)
  - Cerebral haemorrhage [Unknown]
  - Fall [Unknown]
